FAERS Safety Report 13871912 (Version 2)
Quarter: 2018Q1

REPORT INFORMATION
  Report Type: Spontaneous
  Country: CH (occurrence: CH)
  Receive Date: 20170816
  Receipt Date: 20180326
  Transmission Date: 20180508
  Serious: Yes (Hospitalization, Other)
  Sender: FDA-Public Use
  Company Number: CH-PFIZER INC-2017348490

PATIENT
  Age: 77 Year
  Sex: Female

DRUGS (10)
  1. TEMESTA (LORAZEPAM) [Suspect]
     Active Substance: LORAZEPAM
     Dosage: 7.5 MG, 3X/DAY
     Route: 048
     Dates: start: 20170707, end: 20170707
  2. TRAMAL [Interacting]
     Active Substance: TRAMADOL
     Indication: BACK PAIN
     Dosage: 50 MG, UNK
     Route: 048
     Dates: end: 20170709
  3. NEXIUM [Concomitant]
     Active Substance: ESOMEPRAZOLE MAGNESIUM
     Dosage: UNK
  4. DISTRANEURIN /00027501/ [Interacting]
     Active Substance: CLOMETHIAZOLE
     Dosage: 192 MG, 1X/DAY
     Route: 048
     Dates: start: 20170708, end: 20170709
  5. ZYPREXA [Interacting]
     Active Substance: OLANZAPINE
     Dosage: 5 MG, UNK
     Route: 048
     Dates: start: 20170709, end: 20170709
  6. COVERSUM N COMBI [Concomitant]
     Active Substance: INDAPAMIDE\PERINDOPRIL ARGININE
     Dosage: UNK
  7. TEMESTA (LORAZEPAM) [Interacting]
     Active Substance: LORAZEPAM
     Dosage: 7.5 MG, 1X/DAY
     Route: 048
     Dates: start: 20170708, end: 20170708
  8. TEMESTA (LORAZEPAM) [Interacting]
     Active Substance: LORAZEPAM
     Dosage: 7.5 MG, 2X/DAY
     Route: 048
     Dates: start: 20170711, end: 20170711
  9. BRINTELLIX [Interacting]
     Active Substance: VORTIOXETINE HYDROBROMIDE
     Dosage: 5 MG, 1X/DAY (CURRENT TREATMENT AT HOME, START DATE NOT KNOWN, SINCE AT LEAST APR2017)
     Route: 048
     Dates: end: 20170708
  10. HALDOL [Interacting]
     Active Substance: HALOPERIDOL
     Dosage: 0.5 MG, UNK
     Route: 048
     Dates: start: 20170708, end: 20170708

REACTIONS (10)
  - Drug interaction [Recovered/Resolved]
  - Fall [Recovered/Resolved]
  - Inappropriate antidiuretic hormone secretion [Recovered/Resolved]
  - Urinary retention [Recovered/Resolved]
  - Agitation [Recovered/Resolved]
  - Head injury [Unknown]
  - Gait disturbance [Recovered/Resolved]
  - Confusional state [Recovered/Resolved]
  - Hyponatraemia [Recovered/Resolved]
  - Tachycardia [Recovered/Resolved]

NARRATIVE: CASE EVENT DATE: 201707
